FAERS Safety Report 9393340 (Version 1)
Quarter: 2013Q3

REPORT INFORMATION
  Report Type: Spontaneous
  Country: AU (occurrence: AU)
  Receive Date: 20130710
  Receipt Date: 20130710
  Transmission Date: 20140515
  Serious: Yes (Other)
  Sender: FDA-Public Use
  Company Number: AU-PFIZER INC-2013199478

PATIENT
  Age: 42 Year
  Sex: Male

DRUGS (1)
  1. SUTENT [Suspect]
     Indication: RENAL CELL CARCINOMA
     Dosage: 50 MG, 2 WEEKS ON/1 WEEK OFF
     Dates: start: 20130620

REACTIONS (5)
  - Splinter haemorrhages [Recovered/Resolved]
  - Oral pain [Recovered/Resolved]
  - Irritable bowel syndrome [Recovered/Resolved]
  - Hyperaesthesia [Recovered/Resolved]
  - Rash [Recovered/Resolved]
